FAERS Safety Report 5545829-1 (Version None)
Quarter: 2007Q4

REPORT INFORMATION
  Report Type: 
  Country: None (occurrence: None)
  Receive Date: 20071211
  Receipt Date: 20071026
  Transmission Date: 20080405
  Serious: No
  Sender: FDA-Public Use
  Company Number: US-ASTRAZENECA-2007UW16147

PATIENT
  Age: 959 Month
  Sex: Female
  Weight: 52.2 kg

DRUGS (9)
  1. SYMBICORT [Suspect]
     Indication: ASTHMA
     Dosage: 160/4.5 MCG BID
     Route: 055
     Dates: start: 20070702, end: 20070701
  2. SYMBICORT [Suspect]
     Dosage: 80/4.5 MCG 2 PUFFS BID
     Route: 055
     Dates: start: 20071001
  3. DIOVAN [Concomitant]
  4. PROTONIX [Concomitant]
  5. ADVAIR DISKUS 100/50 [Concomitant]
  6. ALBUTEROL [Concomitant]
  7. PROVENTIL [Concomitant]
  8. PREDNISONE [Concomitant]
  9. CADUET [Concomitant]

REACTIONS (7)
  - DRY MOUTH [None]
  - GLOSSODYNIA [None]
  - HEADACHE [None]
  - NERVOUSNESS [None]
  - ORAL DISCOMFORT [None]
  - TONGUE DRY [None]
  - TOOTHACHE [None]
